FAERS Safety Report 9238749 (Version 1)
Quarter: 2013Q2

REPORT INFORMATION
  Report Type: Spontaneous
  Country: US (occurrence: None)
  Receive Date: 20130417
  Receipt Date: 20130417
  Transmission Date: 20140414
  Serious: Yes (Life-Threatening, Hospitalization)
  Sender: FDA-Public Use
  Company Number: None

PATIENT
  Age: 58 Year
  Sex: Female
  Weight: 108.86 kg

DRUGS (1)
  1. NITROFURN MONO 100 MG CAP MACROBID MYLA [Suspect]
     Indication: URINARY TRACT INFECTION
     Dosage: 1 CAP  EVERY 12HR  ORAL
     Route: 048
     Dates: start: 20121120, end: 20121127

REACTIONS (2)
  - Pneumonia [None]
  - Dyspnoea [None]
